FAERS Safety Report 8077013-4 (Version None)
Quarter: 2012Q1

REPORT INFORMATION
  Report Type: 
  Country: None (occurrence: None)
  Receive Date: 20120127
  Receipt Date: 20120120
  Transmission Date: 20120608
  Serious: Yes (Hospitalization, Other)
  Sender: FDA-Public Use
  Company Number: PHHY2010CA51486

PATIENT
  Sex: Female

DRUGS (1)
  1. ZOLEDRONOC ACID [Suspect]
     Indication: OSTEOPOROSIS
     Dosage: UNK UKN, UNK
     Route: 042
     Dates: start: 20090824

REACTIONS (6)
  - WOUND INFECTION [None]
  - INJURY [None]
  - FALL [None]
  - MITRAL VALVE STENOSIS [None]
  - MOBILITY DECREASED [None]
  - DYSPNOEA [None]
